FAERS Safety Report 9869991 (Version 1)
Quarter: 2014Q1

REPORT INFORMATION
  Report Type: Spontaneous
  Country: IT (occurrence: None)
  Receive Date: 20140131
  Receipt Date: 20140131
  Transmission Date: 20141002
  Serious: Yes (Other)
  Sender: FDA-Public Use
  Company Number: 2014P100565

PATIENT
  Age: 6 Month
  Sex: 0
  Weight: 9 kg

DRUGS (9)
  1. PHENYLEPHRINE [Suspect]
     Indication: MYDRIASIS
     Dosage: 1 GTT; X1; OPH
     Route: 047
  2. PHENYLEPHRINE [Suspect]
     Indication: INTRAOPERATIVE CARE
     Dosage: 1 GTT; X1; OPH
     Route: 047
  3. DESFLURANE [Concomitant]
  4. PROPOFOL [Concomitant]
  5. REMIPENTANIL [Concomitant]
  6. TOPICAMIDE [Concomitant]
  7. DEXAMETHASONE [Concomitant]
  8. TRAMADOL [Concomitant]
  9. ACETAMINOPHEN [Concomitant]

REACTIONS (7)
  - Hypertension [None]
  - Tachycardia [None]
  - Dyskinesia [None]
  - Pulmonary arterial pressure increased [None]
  - Mitral valve incompetence [None]
  - Ventricular failure [None]
  - Arrhythmia [None]
